FAERS Safety Report 25690722 (Version 1)
Quarter: 2025Q3

REPORT INFORMATION
  Report Type: Spontaneous
  Country: US (occurrence: None)
  Receive Date: 20250817
  Receipt Date: 20250817
  Transmission Date: 20251021
  Serious: Yes (Hospitalization, Disabling, Other)
  Sender: FDA-CTU
  Company Number: None

PATIENT
  Age: 50 Year
  Sex: Female
  Weight: 92.25 kg

DRUGS (11)
  1. MOUNJARO [Suspect]
     Active Substance: TIRZEPATIDE
     Indication: Weight decreased
     Route: 050
     Dates: start: 20241105, end: 20250611
  2. PROPRANOLOL [Concomitant]
     Active Substance: PROPRANOLOL HYDROCHLORIDE
  3. PANTOPRAZOLE [Concomitant]
     Active Substance: PANTOPRAZOLE
  4. AMLODIPINE BESYLATE [Concomitant]
     Active Substance: AMLODIPINE BESYLATE
  5. PEPCID [Concomitant]
     Active Substance: FAMOTIDINE
  6. Maolax [Concomitant]
  7. TYLENOL [Concomitant]
     Active Substance: ACETAMINOPHEN
  8. VITAMINS [Concomitant]
     Active Substance: VITAMINS
  9. MAGNESIUM [Concomitant]
     Active Substance: MAGNESIUM
  10. Fiber with probiotics [Concomitant]
  11. VITAMIN D [Concomitant]
     Active Substance: VITAMIN D NOS

REACTIONS (12)
  - Dizziness [None]
  - Hypoglycaemia [None]
  - Hypotension [None]
  - Palpitations [None]
  - Muscular weakness [None]
  - Myalgia [None]
  - Postural orthostatic tachycardia syndrome [None]
  - Cerebrovascular accident [None]
  - Facial paralysis [None]
  - Hypoaesthesia [None]
  - Autonomic nervous system imbalance [None]
  - Emergency care [None]

NARRATIVE: CASE EVENT DATE: 20250611
